FAERS Safety Report 7379276-7 (Version None)
Quarter: 2011Q1

REPORT INFORMATION
  Report Type: 
  Country: None (occurrence: None)
  Receive Date: 20110328
  Receipt Date: 20110304
  Transmission Date: 20110831
  Serious: Yes (Hospitalization)
  Sender: FDA-Public Use
  Company Number: GB-AMGEN-GBRCT2010004420

PATIENT
  Age: 30 Year
  Sex: Female

DRUGS (4)
  1. CAPECITABINE [Concomitant]
  2. DENOSUMAB [Suspect]
     Indication: METASTASES TO BONE
     Dosage: 1.7 ML, QMO
     Route: 058
     Dates: start: 20091218
  3. NYSTATIN [Concomitant]
  4. LOPERAMIDE [Concomitant]

REACTIONS (1)
  - METASTASES TO MENINGES [None]
